FAERS Safety Report 24645740 (Version 2)
Quarter: 2025Q3

REPORT INFORMATION
  Report Type: Spontaneous
  Country: US (occurrence: US)
  Receive Date: 20241121
  Receipt Date: 20250810
  Transmission Date: 20251020
  Serious: No
  Sender: ALEXION PHARMACEUTICALS
  Company Number: US-ASTRAZENECA-202409GLO014939US

PATIENT
  Age: 56 Year
  Sex: Male
  Weight: 95.2 kg

DRUGS (4)
  1. QUETIAPINE FUMARATE [Suspect]
     Active Substance: QUETIAPINE FUMARATE
     Indication: Bipolar disorder
  2. CAPLYTA [Suspect]
     Active Substance: LUMATEPERONE
     Indication: Bipolar disorder
     Dosage: 1 UNK, QD
     Dates: start: 20241001, end: 20241020
  3. FLUOXETINE [Concomitant]
     Active Substance: FLUOXETINE HYDROCHLORIDE
  4. LAMOTRIGINE [Concomitant]
     Active Substance: LAMOTRIGINE

REACTIONS (10)
  - Memory impairment [Unknown]
  - Feeling jittery [Unknown]
  - Panic attack [Unknown]
  - Anxiety [Unknown]
  - Influenza like illness [Unknown]
  - Somnolence [Unknown]
  - Restlessness [Unknown]
  - Dizziness [Unknown]
  - Gait disturbance [Unknown]
  - Akathisia [Unknown]
